FAERS Safety Report 16779037 (Version 1)
Quarter: 2019Q3

REPORT INFORMATION
  Report Type: Spontaneous
  Country: PT (occurrence: PT)
  Receive Date: 20190906
  Receipt Date: 20190906
  Transmission Date: 20191005
  Serious: Yes (Disabling)
  Sender: FDA-Public Use
  Company Number: PT-TEVA-2019-PT-1102004

PATIENT
  Age: 82 Year
  Sex: Male

DRUGS (2)
  1. TRIPTORRELINA [Concomitant]
     Dosage: 11.25 MG, 1 DAY
     Route: 030
     Dates: start: 20181116, end: 20181116
  2. BICALUTAMIDA TEVA [Suspect]
     Active Substance: BICALUTAMIDE
     Indication: PROSTATE CANCER
     Dosage: 1 DOSAGE FORM
     Route: 048
     Dates: start: 201811, end: 201908

REACTIONS (4)
  - Fatigue [Recovering/Resolving]
  - Rash [Recovering/Resolving]
  - Oedema [Recovering/Resolving]
  - Urticaria [Recovering/Resolving]

NARRATIVE: CASE EVENT DATE: 201812
